FAERS Safety Report 6274300-7 (Version None)
Quarter: 2009Q3

REPORT INFORMATION
  Report Type: 
  Country: None (occurrence: None)
  Receive Date: 20090716
  Receipt Date: 20090701
  Transmission Date: 20100115
  Serious: Yes (Death)
  Sender: FDA-Public Use
  Company Number: 2009001710

PATIENT
  Age: 75 Year
  Sex: Male

DRUGS (5)
  1. ERLOTINIB (ERLOTINIB) (TABLET) (ERLOTINIB) [Suspect]
     Indication: NON-SMALL CELL LUNG CANCER METASTATIC
     Dosage: ORAL
     Route: 048
  2. FORADIL [Concomitant]
  3. PARACETAMOL (PARACETAMOL) [Concomitant]
  4. METFORMIN HCL [Concomitant]
  5. IPERTEN (MANIDIPINE HYDROCHLORIDE) [Concomitant]

REACTIONS (1)
  - RESPIRATORY DISTRESS [None]
